FAERS Safety Report 12575636 (Version 1)
Quarter: 2016Q3

REPORT INFORMATION
  Report Type: Spontaneous
  Country: US (occurrence: US)
  Receive Date: 20160720
  Receipt Date: 20160720
  Transmission Date: 20161109
  Serious: No
  Sender: FDA-Public Use
  Company Number: US-PFIZER INC-3064327

PATIENT
  Sex: Male

DRUGS (1)
  1. GLUCOSE/SODIUM CHLORIDE [Suspect]
     Active Substance: DEXTROSE\SODIUM CHLORIDE
     Indication: PRODUCT USED FOR UNKNOWN INDICATION
     Dosage: UNK
     Route: 041
     Dates: start: 20150101, end: 20151028

REACTIONS (5)
  - Infusion site vesicles [None]
  - Infusion site extravasation [Recovered/Resolved]
  - Erythema [Recovered/Resolved]
  - Infusion site erythema [None]
  - Blister [Recovered/Resolved]

NARRATIVE: CASE EVENT DATE: 20151028
